FAERS Safety Report 10278428 (Version 4)
Quarter: 2014Q3

REPORT INFORMATION
  Report Type: Spontaneous
  Country: JP (occurrence: JP)
  Receive Date: 20140704
  Receipt Date: 20140825
  Transmission Date: 20150326
  Serious: Yes (Hospitalization, Other)
  Sender: FDA-Public Use
  Company Number: JP-009507513-1404JPN012004

PATIENT
  Age: 65 Year
  Sex: Male
  Weight: 63 kg

DRUGS (7)
  1. CANCIDAS [Suspect]
     Active Substance: CASPOFUNGIN ACETATE
     Indication: SYSTEMIC CANDIDA
     Dosage: 70 MG, QD
     Route: 041
     Dates: start: 20131202, end: 20131202
  2. TAKEPRON [Concomitant]
     Active Substance: LANSOPRAZOLE
     Indication: GASTROOESOPHAGEAL REFLUX DISEASE
     Dosage: 15 MG, QD
     Route: 048
  3. CANCIDAS [Suspect]
     Active Substance: CASPOFUNGIN ACETATE
     Indication: SYSTEMIC CANDIDA
     Dosage: 50 MG, QD
     Route: 041
     Dates: start: 20131203, end: 20131217
  4. GASMOTIN [Concomitant]
     Active Substance: MOSAPRIDE CITRATE
     Indication: GASTROOESOPHAGEAL REFLUX DISEASE
     Dosage: 5 MG, BID
     Route: 048
  5. BIO-THREE [Concomitant]
     Active Substance: HERBALS
     Indication: DYSBACTERIOSIS
     Dosage: 1 G, TID
     Route: 048
  6. HERBAL NOS [Concomitant]
     Active Substance: HERBALS
     Indication: GASTROOESOPHAGEAL REFLUX DISEASE
     Dosage: 2.5 G, TID
     Route: 048
     Dates: start: 2013
  7. LIPACREON [Concomitant]
     Active Substance: PANCRELIPASE
     Indication: PANCREATIC INSUFFICIENCY
     Dosage: 2 DF, TID
     Route: 048
     Dates: start: 2013

REACTIONS (5)
  - Haemostasis [Recovered/Resolved]
  - Splenic artery aneurysm [Recovered/Resolved]
  - Anastomotic haemorrhage [Recovered/Resolved]
  - Portal vein thrombosis [Recovered/Resolved]
  - Aneurysm repair [Recovered/Resolved]

NARRATIVE: CASE EVENT DATE: 20131205
